FAERS Safety Report 4501787-X (Version None)
Quarter: 2004Q4

REPORT INFORMATION
  Report Type: 
  Country: None (occurrence: None)
  Receive Date: 20041109
  Receipt Date: 20041105
  Transmission Date: 20050328
  Serious: Yes (Hospitalization)
  Sender: FDA-Public Use
  Company Number: 200412983GDS

PATIENT
  Age: 30 Year
  Sex: Male

DRUGS (1)
  1. ASPIRIN [Suspect]

REACTIONS (9)
  - ACUTE RESPIRATORY DISTRESS SYNDROME [None]
  - BLOOD ALDOSTERONE DECREASED [None]
  - BLOOD CORTICOTROPHIN DECREASED [None]
  - DIALYSIS [None]
  - DISSEMINATED INTRAVASCULAR COAGULATION [None]
  - HYPERKALAEMIA [None]
  - LABORATORY TEST ABNORMAL [None]
  - OVERDOSE [None]
  - STRESS SYMPTOMS [None]
